FAERS Safety Report 8366199-X (Version None)
Quarter: 2012Q2

REPORT INFORMATION
  Report Type: 
  Country: None (occurrence: None)
  Receive Date: 20120517
  Receipt Date: 20120510
  Transmission Date: 20120825
  Serious: Yes (Hospitalization, Other)
  Sender: FDA-Public Use
  Company Number: US-ABBOTT-12P-163-0934855-00

PATIENT
  Sex: Male
  Weight: 111.23 kg

DRUGS (5)
  1. PROBIOTICS [Concomitant]
     Indication: CROHN'S DISEASE
     Dosage: 2 IN 1 DAY
  2. HUMIRA [Suspect]
     Dates: start: 20090101, end: 20100101
  3. LISINOPRIL [Concomitant]
     Indication: HYPERTENSION
  4. HUMIRA [Suspect]
     Indication: CROHN'S DISEASE
     Dosage: BEGAN WITH LOADING DOSE
     Route: 058
     Dates: start: 20090101
  5. AZATHIOPRINE [Concomitant]
     Indication: ARTHRITIS
     Dosage: 1 IN 1 DAY

REACTIONS (5)
  - INTESTINAL OBSTRUCTION [None]
  - LOSS OF CONSCIOUSNESS [None]
  - CONSTIPATION [None]
  - ABDOMINAL PAIN UPPER [None]
  - VOMITING [None]
